FAERS Safety Report 4682933-4 (Version None)
Quarter: 2005Q2

REPORT INFORMATION
  Report Type: 
  Country: None (occurrence: None)
  Receive Date: 20050602
  Receipt Date: 20050331
  Transmission Date: 20051028
  Serious: No
  Sender: FDA-Public Use
  Company Number: US_0504115264

PATIENT
  Age: 47 Year
  Sex: Female

DRUGS (1)
  1. CYMBALTA [Suspect]
     Indication: DEPRESSION
     Dosage: 20 MG/ 2 DAY
     Dates: start: 20041201

REACTIONS (2)
  - CONSTIPATION [None]
  - DYSGEUSIA [None]
